FAERS Safety Report 9843229 (Version 1)
Quarter: 2014Q1

REPORT INFORMATION
  Report Type: Spontaneous
  Country: US (occurrence: US)
  Receive Date: 20140124
  Receipt Date: 20140124
  Transmission Date: 20141002
  Serious: No
  Sender: FDA-Public Use
  Company Number: US-NOVEN-13US007897

PATIENT
  Age: 56 Year
  Sex: Female

DRUGS (4)
  1. BRISDELLE [Suspect]
     Indication: HOT FLUSH
     Dosage: 7.5 MG, BEDTIME
     Route: 048
     Dates: start: 201309, end: 2013
  2. LIPITOR [Concomitant]
     Indication: BLOOD CHOLESTEROL INCREASED
     Dosage: 20 MG, UNK
     Route: 048
  3. MULTIVITAMIN                       /00097801/ [Concomitant]
     Route: 048
  4. EXCEDRIN                           /00110301/ [Concomitant]
     Indication: HEADACHE
     Route: 048

REACTIONS (3)
  - Migraine [Recovered/Resolved]
  - Feeling abnormal [Recovered/Resolved]
  - Dry mouth [Recovered/Resolved]
